FAERS Safety Report 4706939-1 (Version None)
Quarter: 2005Q3

REPORT INFORMATION
  Report Type: 
  Country: None (occurrence: None)
  Receive Date: 20050706
  Receipt Date: 20050512
  Transmission Date: 20060218
  Serious: Yes (Life-Threatening, Hospitalization)
  Sender: FDA-Public Use
  Company Number: JP-BOEHRINGER INGELHEIM PHARMACEUTICALS, INC.-2005-BP-07947YA

PATIENT
  Sex: Male

DRUGS (2)
  1. HARNAL [Suspect]
     Indication: BENIGN PROSTATIC HYPERPLASIA
     Dosage: 0.2 MG AM
     Route: 048
     Dates: start: 20041115, end: 20050120
  2. HARNAL [Suspect]
     Indication: DYSURIA

REACTIONS (1)
  - GASTRIC ULCER HAEMORRHAGE [None]
